FAERS Safety Report 8206759-X (Version None)
Quarter: 2012Q1

REPORT INFORMATION
  Report Type: 
  Country: None (occurrence: None)
  Receive Date: 20120309
  Receipt Date: 20120228
  Transmission Date: 20120608
  Serious: Yes (Hospitalization)
  Sender: FDA-Public Use
  Company Number: 1215813

PATIENT
  Age: 69 Year
  Sex: Male

DRUGS (10)
  1. NEXIUM [Concomitant]
  2. TIORFAN [Concomitant]
  3. LEXOMIL [Concomitant]
  4. ATORVASTATIN [Concomitant]
  5. POLYETHYLENE GLYCOL [Concomitant]
  6. CARBOPLATIN [Suspect]
     Indication: LUNG NEOPLASM MALIGNANT
     Dosage: INTRAVENOUS (NOT OTHERWISE SPECIFIED)
     Route: 042
     Dates: start: 20111205
  7. PACLITAXEL [Suspect]
     Indication: LUNG NEOPLASM MALIGNANT
     Dosage: INTRAVENOUS (NOT OTHERWISE SPECIFIED)
     Route: 042
     Dates: start: 20111205
  8. FOLIC ACID [Concomitant]
  9. ACETAMINOPHEN [Concomitant]
  10. CORDARONE [Concomitant]

REACTIONS (1)
  - PANCYTOPENIA [None]
